FAERS Safety Report 22331398 (Version 2)
Quarter: 2023Q2

REPORT INFORMATION
  Report Type: Spontaneous
  Country: US (occurrence: US)
  Receive Date: 20230517
  Receipt Date: 20230628
  Transmission Date: 20230722
  Serious: No
  Sender: FDA-Public Use
  Company Number: US-SA-SAC20230516001535

PATIENT
  Age: 69 Year
  Sex: Male
  Weight: 78.4 kg

DRUGS (2)
  1. JEVTANA [Suspect]
     Active Substance: CABAZITAXEL
     Indication: Prostate cancer
     Dosage: 40 MG/ML, Q3W (JEVTANA 60MG/1.5ML EVERY 3 WEEKS)
     Route: 041
     Dates: start: 20230413
  2. JEVTANA [Suspect]
     Active Substance: CABAZITAXEL
     Dosage: 39 MG, Q3W
     Route: 041
     Dates: start: 20230622

REACTIONS (3)
  - Weight increased [Unknown]
  - Weight decreased [Unknown]
  - Therapy change [Unknown]

NARRATIVE: CASE EVENT DATE: 20230512
